FAERS Safety Report 5160984-3 (Version None)
Quarter: 2006Q4

REPORT INFORMATION
  Report Type: 
  Country: None (occurrence: None)
  Receive Date: 20061130
  Receipt Date: 20060727
  Transmission Date: 20070319
  Serious: No
  Sender: FDA-Public Use
  Company Number: US-BRISTOL-MYERS SQUIBB COMPANY-13458153

PATIENT
  Age: 57 Year
  Sex: Male
  Weight: 86 kg

DRUGS (3)
  1. AVALIDE [Suspect]
     Dosage: 300 MG / 12.5 MG, TOOK THE PRODUCT FOR APPROX. 5-6 DAYS
     Route: 048
     Dates: start: 20060609, end: 20060601
  2. VICODIN [Concomitant]
     Indication: TOOTH EXTRACTION
  3. ALEVE [Concomitant]

REACTIONS (5)
  - DIZZINESS [None]
  - MALAISE [None]
  - MEDICATION ERROR [None]
  - PALPITATIONS [None]
  - POLLAKIURIA [None]
